FAERS Safety Report 19833880 (Version 1)
Quarter: 2021Q3

REPORT INFORMATION
  Report Type: Other
  Country: TW (occurrence: TW)
  Receive Date: 20210915
  Receipt Date: 20210915
  Transmission Date: 20211014
  Serious: Yes (Hospitalization, Disabling)
  Sender: FDA-Public Use
  Company Number: TW-DEXPHARM-20211271

PATIENT
  Age: 76 Year
  Sex: Male

DRUGS (5)
  1. CLOPIDOGREL [Concomitant]
     Active Substance: CLOPIDOGREL BISULFATE
  2. VENLAFAXINE [Suspect]
     Active Substance: VENLAFAXINE HYDROCHLORIDE
     Indication: MAJOR DEPRESSION
     Dosage: HE CONTINUED TO USE VENLAFAXINE TO CONTROL HIS DEPRESSION FOR MORE THAN 20 YEARS
  3. BISOPROLOL [Concomitant]
     Active Substance: BISOPROLOL
  4. ATORVASTATIN [Concomitant]
     Active Substance: ATORVASTATIN
  5. SILODOSIN. [Concomitant]
     Active Substance: SILODOSIN

REACTIONS (1)
  - Drug ineffective [Recovering/Resolving]
